FAERS Safety Report 7095591-9 (Version None)
Quarter: 2010Q4

REPORT INFORMATION
  Report Type: 
  Country: None (occurrence: None)
  Receive Date: 20101103
  Receipt Date: 20101021
  Transmission Date: 20110411
  Serious: Yes (Other)
  Sender: FDA-Public Use
  Company Number: 020776

PATIENT
  Sex: Male

DRUGS (2)
  1. VIMPAT [Suspect]
  2. TEGRETOL [Suspect]

REACTIONS (2)
  - ANTIDEPRESSANT DRUG LEVEL INCREASED [None]
  - THERAPEUTIC AGENT TOXICITY [None]
